FAERS Safety Report 24318555 (Version 2)
Quarter: 2024Q3

REPORT INFORMATION
  Report Type: Report from Study
  Country: US (occurrence: US)
  Receive Date: 20240913
  Receipt Date: 20240917
  Transmission Date: 20241016
  Serious: No
  Sender: ALEXION PHARMACEUTICALS
  Company Number: US-AstraZeneca-CH-00702791A

PATIENT
  Sex: Female

DRUGS (1)
  1. STRENSIQ [Suspect]
     Active Substance: ASFOTASE ALFA
     Indication: Product used for unknown indication
     Dosage: UNK
     Route: 065
     Dates: start: 202408

REACTIONS (7)
  - Dizziness [Unknown]
  - Arthropathy [Unknown]
  - Blepharospasm [Unknown]
  - Fatigue [Unknown]
  - Asthenia [Unknown]
  - Frustration tolerance decreased [Unknown]
  - Muscular weakness [Unknown]
